FAERS Safety Report 9339848 (Version 1)
Quarter: 2013Q2

REPORT INFORMATION
  Report Type: Spontaneous
  Country: DE (occurrence: None)
  Receive Date: 20130605
  Receipt Date: 20130605
  Transmission Date: 20140414
  Serious: Yes (Other)
  Sender: FDA-Public Use
  Company Number: GER/GER/13/0029766

PATIENT
  Sex: Female
  Weight: 63 kg

DRUGS (1)
  1. CITALOPRAM [Suspect]
     Indication: PANIC ATTACK
     Route: 048
     Dates: start: 20130105, end: 20130128

REACTIONS (11)
  - Anxiety [None]
  - Confusional state [None]
  - Disturbance in attention [None]
  - Heart rate increased [None]
  - Hyperhidrosis [None]
  - Amnesia [None]
  - Mydriasis [None]
  - Palpitations [None]
  - Restlessness [None]
  - Tremor [None]
  - Visual impairment [None]
